FAERS Safety Report 4592795-1 (Version None)
Quarter: 2005Q1

REPORT INFORMATION
  Report Type: 
  Country: None (occurrence: None)
  Receive Date: 20050222
  Receipt Date: 20050210
  Transmission Date: 20050727
  Serious: Yes (Life-Threatening, Hospitalization)
  Sender: FDA-Public Use
  Company Number: F01200500012

PATIENT
  Age: 51 Year
  Sex: Male

DRUGS (6)
  1. ELOXATIN - (OXALIPLATIN) - SOLUTION - 260 MG [Suspect]
     Indication: COLON CANCER METASTATIC
     Dosage: INTRAVENOUS NOS
     Route: 042
     Dates: start: 20041207, end: 20041207
  2. XELODA [Suspect]
     Dosage: 200 MG TWICE DAILY FOR TWO WEEKS, ORAL
     Route: 048
  3. ZOFRAN [Concomitant]
  4. DEXAMETHASON (DEXAMETHASONE) [Concomitant]
  5. NATRIUM CHLORIDE (SODIUM CHLORIDE) [Concomitant]
  6. DIAZEPAM [Concomitant]

REACTIONS (3)
  - ANAPHYLACTIC REACTION [None]
  - INFUSION RELATED REACTION [None]
  - RESPIRATORY DEPRESSION [None]
